FAERS Safety Report 6277752-1 (Version None)
Quarter: 2009Q3

REPORT INFORMATION
  Report Type: 
  Country: None (occurrence: None)
  Receive Date: 20090722
  Receipt Date: 20090715
  Transmission Date: 20100115
  Serious: Yes (Hospitalization)
  Sender: FDA-Public Use
  Company Number: B0584063A

PATIENT
  Sex: Male
  Weight: 65 kg

DRUGS (3)
  1. AUGMENTIN [Suspect]
     Indication: TONSILLITIS
     Dosage: 1G TWICE PER DAY
     Route: 048
     Dates: start: 20090619, end: 20090626
  2. RHINADVIL [Suspect]
     Indication: TONSILLITIS
     Dosage: 1TAB THREE TIMES PER DAY
     Route: 048
     Dates: start: 20090622, end: 20090626
  3. RHINOFLUIMUCIL [Suspect]
     Indication: TONSILLITIS
     Dosage: 1SPR FOUR TIMES PER DAY
     Route: 045
     Dates: start: 20090622, end: 20090626

REACTIONS (6)
  - ALLERGIC OEDEMA [None]
  - ERYTHEMA [None]
  - EYELID OEDEMA [None]
  - LIP OEDEMA [None]
  - PRURITUS [None]
  - RASH MACULO-PAPULAR [None]
